FAERS Safety Report 22629370 (Version 1)
Quarter: 2023Q2

REPORT INFORMATION
  Report Type: Report from Study
  Country: US (occurrence: US)
  Receive Date: 20230622
  Receipt Date: 20230622
  Transmission Date: 20230722
  Serious: Yes (Hospitalization, Other)
  Sender: FDA-Public Use
  Company Number: US-UCBSA-2023030731

PATIENT
  Sex: Female

DRUGS (16)
  1. BRIVIACT [Suspect]
     Active Substance: BRIVARACETAM
     Indication: Partial seizures
     Dosage: 50 MILLIGRAM, 2X/DAY (BID)
     Route: 048
     Dates: start: 2023
  2. BRIVIACT [Suspect]
     Active Substance: BRIVARACETAM
     Dosage: 2 TABLETS (150 MG TOTAL) BY MOUTH IN THE MORNING AND 2 TABLETS (150 RNG TOTAL) BEFORE BEDTIME
     Route: 048
     Dates: start: 20230607, end: 20230616
  3. KEPPRA [Suspect]
     Active Substance: LEVETIRACETAM
     Indication: Partial seizures
     Dosage: 500MG- 1 TAB BID
  4. KEPPRA [Suspect]
     Active Substance: LEVETIRACETAM
     Dosage: 1500 MILLIGRAM, 2X/DAY (BID)
     Dates: start: 2023
  5. KEPPRA [Suspect]
     Active Substance: LEVETIRACETAM
     Dosage: 500 MG TWICE A DAY FOR 1 WEEK
  6. MIDAZOLAM [Concomitant]
     Active Substance: MIDAZOLAM
     Indication: Product used for unknown indication
     Dosage: 5 MG/SPRAY (0.1 ML), MAX, 2 DOSES/SINGLE)
     Route: 045
     Dates: start: 20230607
  7. ONFI [Concomitant]
     Active Substance: CLOBAZAM
     Indication: Product used for unknown indication
     Dosage: 2 ML (5 MG TOTAL) BY MOUTH IN THE MORNING AND 2 ML (5 MG TOTAL) BEFORE BEDTIME (SUSPENSION)
     Route: 048
     Dates: start: 20230607
  8. NAYZILAM [Concomitant]
     Active Substance: MIDAZOLAM
     Indication: Product used for unknown indication
     Dosage: 1 SPRAY (5 MG) INTO 1 NOSTRIL; IF NO RESPONSE, A SECOND DOSE OF 1 SPRAY (5 MG) INTO THE OPPOSITE NOS
     Route: 045
  9. ZOFRAN [Concomitant]
     Active Substance: ONDANSETRON HYDROCHLORIDE
     Indication: Nausea
     Dosage: 4 MG, TWICE A DAY AS NEEDED (DO NOT TAKE MORE THAN TWICE A WEEK)
     Route: 048
     Dates: start: 20230607
  10. BUSPAR [Concomitant]
     Active Substance: BUSPIRONE HYDROCHLORIDE
     Indication: Product used for unknown indication
     Dosage: 10 MG BY MOUTH IN THE MORNING AND 10 MG IN THE EVENING.
     Route: 048
  11. VITAMIN D3 [Concomitant]
     Active Substance: CHOLECALCIFEROL
     Indication: Product used for unknown indication
     Dosage: 5,000 UNITS BY MOUTH 1 (ONE) TIME EACH DAY.
     Route: 048
     Dates: start: 20230607
  12. PRISTIQ EXTENDED-RELEASE [Concomitant]
     Active Substance: DESVENLAFAXINE SUCCINATE
     Indication: Product used for unknown indication
     Dosage: 100 MILLIGRAM, ONCE DAILY (QD)
     Route: 048
  13. LUNESTA [Concomitant]
     Active Substance: ESZOPICLONE
     Indication: Product used for unknown indication
     Dosage: 3 MG BY MOUTH AT NIGHT IF NEEDED (SLEEP).
     Route: 048
  14. LATUDA [Concomitant]
     Active Substance: LURASIDONE HYDROCHLORIDE
     Indication: Product used for unknown indication
     Dosage: 40 MG BY MOUTH EVERY NIGHT AT BEDTIME
     Route: 048
  15. DEPADE [Concomitant]
     Indication: Product used for unknown indication
     Dosage: 25 MG BY MOUTH IN THE MORNING AND 25 MG IN THE EVENING
     Route: 048
  16. SONATA [Concomitant]
     Active Substance: ZALEPLON
     Indication: Product used for unknown indication
     Dosage: 10-20 MG BY MOUTH AT NIGHT IF NEEDED FOR SLEEP
     Route: 048

REACTIONS (3)
  - Seizure [Unknown]
  - Urinary incontinence [Unknown]
  - Mouth injury [Unknown]

NARRATIVE: CASE EVENT DATE: 20230101
